FAERS Safety Report 16614497 (Version 12)
Quarter: 2023Q4

REPORT INFORMATION
  Report Type: Spontaneous
  Country: US (occurrence: US)
  Receive Date: 20190723
  Receipt Date: 20231027
  Transmission Date: 20240110
  Serious: Yes (Other)
  Sender: FDA-Public Use
  Company Number: US-PFIZER INC-2019304030

PATIENT
  Age: 66 Year
  Sex: Female

DRUGS (2)
  1. PREMARIN [Suspect]
     Active Substance: ESTROGENS, CONJUGATED
     Indication: Thrombosis
     Dosage: 1G (INSERT 1/2 APPLICATORFUL VAGINALLY TWICE A WEEK), 2X/WEEK
     Route: 067
     Dates: start: 20190711
  2. PREMARIN [Suspect]
     Active Substance: ESTROGENS, CONJUGATED
     Dosage: 3 TIMES A WEEK

REACTIONS (16)
  - Osteoarthritis [Unknown]
  - Bone disorder [Unknown]
  - Bursa disorder [Unknown]
  - Foot fracture [Unknown]
  - Musculoskeletal discomfort [Unknown]
  - Arthralgia [Unknown]
  - Vulvovaginal dryness [Unknown]
  - Vaginal infection [Unknown]
  - Crying [Unknown]
  - Peripheral swelling [Unknown]
  - Fall [Unknown]
  - Rotator cuff syndrome [Unknown]
  - Arthritis [Unknown]
  - Psoriasis [Unknown]
  - Off label use [Unknown]
  - Product prescribing error [Unknown]
